FAERS Safety Report 24001723 (Version 1)
Quarter: 2024Q2

REPORT INFORMATION
  Report Type: Report from Study
  Country: US (occurrence: US)
  Receive Date: 20240621
  Receipt Date: 20240621
  Transmission Date: 20240716
  Serious: Yes (Other)
  Sender: FDA-Public Use
  Company Number: US-ABBVIE-5807979

PATIENT
  Sex: Female

DRUGS (5)
  1. RINVOQ [Suspect]
     Active Substance: UPADACITINIB
     Indication: Psoriatic arthropathy
     Dosage: STOP DATE : JAN 2024
     Route: 048
     Dates: start: 20240115
  2. RINVOQ [Suspect]
     Active Substance: UPADACITINIB
     Indication: Psoriatic arthropathy
     Route: 048
     Dates: start: 20240119, end: 20240614
  3. RINVOQ [Suspect]
     Active Substance: UPADACITINIB
     Indication: Psoriatic arthropathy
     Route: 048
     Dates: start: 2024, end: 2024
  4. KEFLEX [Concomitant]
     Active Substance: CEPHALEXIN
     Indication: Product used for unknown indication
  5. URSODIOL [Concomitant]
     Active Substance: URSODIOL
     Indication: Product used for unknown indication
     Dosage: ACID URSO

REACTIONS (6)
  - Haemorrhage [Not Recovered/Not Resolved]
  - Primary biliary cholangitis [Unknown]
  - Nephropathy [Unknown]
  - Osteoarthritis [Recovering/Resolving]
  - Malaise [Unknown]
  - Blood iron decreased [Recovering/Resolving]

NARRATIVE: CASE EVENT DATE: 20240101
